FAERS Safety Report 17749083 (Version 3)
Quarter: 2021Q1

REPORT INFORMATION
  Report Type: Spontaneous
  Country: US (occurrence: US)
  Receive Date: 20200505
  Receipt Date: 20210212
  Transmission Date: 20210419
  Serious: Yes (Other)
  Sender: FDA-Public Use
  Company Number: US-GILEAD-2020-0464169

PATIENT
  Age: 29 Year
  Sex: Female

DRUGS (1)
  1. TRUVADA [Suspect]
     Active Substance: EMTRICITABINE\TENOFOVIR DISOPROXIL FUMARATE
     Indication: PROPHYLAXIS AGAINST HIV INFECTION
     Dosage: UNK
     Route: 048
     Dates: start: 20190517, end: 20191104

REACTIONS (13)
  - Renal injury [Unknown]
  - Blood creatinine increased [Recovered/Resolved]
  - Bone loss [Unknown]
  - Osteonecrosis [Unknown]
  - Tooth loss [Not Recovered/Not Resolved]
  - Bone density decreased [Unknown]
  - Skeletal injury [Unknown]
  - Multiple fractures [Unknown]
  - Chronic kidney disease [Unknown]
  - Renal impairment [Recovered/Resolved]
  - Protein total abnormal [Recovered/Resolved]
  - Renal failure [Unknown]
  - Glomerular filtration rate abnormal [Recovered/Resolved]

NARRATIVE: CASE EVENT DATE: 20190520
